FAERS Safety Report 4801641-X (Version None)
Quarter: 2005Q4

REPORT INFORMATION
  Report Type: 
  Country: None (occurrence: None)
  Receive Date: 20051014
  Receipt Date: 20051014
  Transmission Date: 20060501
  Serious: Yes (Hospitalization)
  Sender: FDA-Public Use
  Company Number: None

PATIENT
  Sex: Female
  Weight: 66.9 kg

DRUGS (6)
  1. IRINOTECAN 340 MG/M2 [Suspect]
     Indication: GLIOBLASTOMA MULTIFORME
     Dosage: 570 MG
     Dates: start: 20050712
  2. IRINOTECAN 340 MG/M2 [Suspect]
     Indication: GLIOBLASTOMA MULTIFORME
     Dosage: 570 MG
     Dates: start: 20050726
  3. IRINOTECAN 340 MG/M2 [Suspect]
     Indication: GLIOBLASTOMA MULTIFORME
     Dosage: 570 MG
     Dates: start: 20050809
  4. BEVACIZUMAB 10 MG/KG [Suspect]
     Indication: GLIOBLASTOMA MULTIFORME
     Dosage: 669 MG
     Dates: start: 20050712
  5. BEVACIZUMAB 10 MG/KG [Suspect]
     Indication: GLIOBLASTOMA MULTIFORME
     Dosage: 669 MG
     Dates: start: 20050726
  6. BEVACIZUMAB 10 MG/KG [Suspect]
     Indication: GLIOBLASTOMA MULTIFORME
     Dosage: 669 MG
     Dates: start: 20050809

REACTIONS (5)
  - DEPRESSED LEVEL OF CONSCIOUSNESS [None]
  - GLASGOW COMA SCALE ABNORMAL [None]
  - PETECHIAE [None]
  - SOMNOLENCE [None]
  - URINARY TRACT INFECTION [None]
